FAERS Safety Report 5309105-4 (Version None)
Quarter: 2007Q2

REPORT INFORMATION
  Report Type: 
  Country: None (occurrence: None)
  Receive Date: 20070426
  Receipt Date: 20070419
  Transmission Date: 20071010
  Serious: Yes (Hospitalization)
  Sender: FDA-Public Use
  Company Number: AE-MERCK-0704USA04493

PATIENT
  Age: 52 Year
  Sex: Female

DRUGS (6)
  1. ZETIA [Suspect]
     Indication: HYPERCHOLESTEROLAEMIA
     Route: 048
     Dates: start: 20070204
  2. CYCLOSPORINE [Concomitant]
     Route: 065
  3. IRBESARTAN [Concomitant]
     Route: 065
  4. PRAVASTATIN SODIUM [Concomitant]
     Route: 065
  5. PREDNISOLONE [Concomitant]
     Route: 065
  6. ATENOLOL [Concomitant]
     Route: 048

REACTIONS (4)
  - ABDOMINAL DISTENSION [None]
  - HEADACHE [None]
  - NAUSEA [None]
  - VOMITING [None]
